FAERS Safety Report 7600631-1 (Version None)
Quarter: 2011Q3

REPORT INFORMATION
  Report Type: 
  Country: None (occurrence: None)
  Receive Date: 20110711
  Receipt Date: 20110707
  Transmission Date: 20111222
  Serious: Yes (Hospitalization, Disabling)
  Sender: FDA-Public Use
  Company Number: DE-ROCHE-787466

PATIENT
  Sex: Female
  Weight: 87.3 kg

DRUGS (7)
  1. SCOPOLAMINE [Concomitant]
     Dosage: BUTYLSCOPOLAMINE
     Route: 048
     Dates: start: 20110621
  2. OXALIPLATIN [Suspect]
     Dosage: DOSE REDUCED
     Route: 042
  3. CAPECITABINE [Suspect]
     Indication: RECTAL CANCER
     Dosage: LAST DOSE PRIOR TO SAE:04 JUL 2011.SCHEDULE:825 MG/M2 BID ON D 1-33 W/O WEEKENDS+OPTIMAL BOOST
     Route: 048
     Dates: start: 20110531
  4. CAPECITABINE [Suspect]
     Dosage: DOSE REDUCED
     Route: 048
  5. OXALIPLATIN [Suspect]
     Indication: RECTAL CANCER
     Dosage: LAST DOSE PRIOR TO SAE:28 JUN 2011.SCHEDULE:50 MG/M2 ON D1,8,15,22 AND 29
     Route: 042
     Dates: start: 20110531
  6. LOPERAMIDE [Concomitant]
     Dosage: MAXIMAL 8 IN 1 DAY
     Route: 048
     Dates: start: 20110621
  7. POTASSIUM [Concomitant]
     Indication: HYPOKALAEMIA
     Route: 048
     Dates: start: 20110628, end: 20110706

REACTIONS (2)
  - DEHYDRATION [None]
  - DIARRHOEA [None]
